FAERS Safety Report 7397384-1 (Version None)
Quarter: 2011Q1

REPORT INFORMATION
  Report Type: 
  Country: None (occurrence: None)
  Receive Date: 20110328
  Receipt Date: 20110318
  Transmission Date: 20110831
  Serious: Yes (Death, Hospitalization)
  Sender: FDA-Public Use
  Company Number: 2009AC000179

PATIENT
  Age: 69 Year
  Sex: Female
  Weight: 65.7716 kg

DRUGS (23)
  1. CYCLOSPORINE [Concomitant]
  2. OXYCODONE HCL AND ACETAMINOPHEN [Concomitant]
  3. HYDROCODONE BITARTRATE AND ACETAMINOPHEN [Concomitant]
  4. LEVAQUIN [Concomitant]
  5. METHYLPREDNISOLONE ACETATE [Concomitant]
  6. ASPIRIN [Concomitant]
  7. KLOR-CON [Concomitant]
  8. LEVOTHYROXINE SODIUM [Concomitant]
  9. LORAZEPAM [Concomitant]
  10. SYNTHROID [Concomitant]
  11. CALCIUM [Concomitant]
  12. VISTARIL [Concomitant]
  13. LORTAB [Concomitant]
  14. ALBUTEROL [Concomitant]
  15. ADVAIR DISKUS 100/50 [Concomitant]
  16. INSULIN [Concomitant]
  17. LASIX [Concomitant]
  18. COREG [Concomitant]
  19. MEDROL [Concomitant]
  20. POTASSIUM [Concomitant]
  21. DIGOXIN [Suspect]
     Indication: CARDIAC FAILURE CONGESTIVE
     Dosage: 0.125 MG;QD;PO
     Route: 048
     Dates: start: 20080129, end: 20080419
  22. RESTORIL [Concomitant]
  23. ATIVAN [Concomitant]

REACTIONS (43)
  - ECONOMIC PROBLEM [None]
  - WHEEZING [None]
  - CHEST PAIN [None]
  - STAPHYLOCOCCAL INFECTION [None]
  - FATIGUE [None]
  - CHEST DISCOMFORT [None]
  - ACUTE MYOCARDIAL INFARCTION [None]
  - DIARRHOEA [None]
  - TRICUSPID VALVE INCOMPETENCE [None]
  - AORTIC VALVE INCOMPETENCE [None]
  - UNEVALUABLE EVENT [None]
  - TACHYCARDIA [None]
  - EMPHYSEMA [None]
  - ISCHAEMIC CARDIOMYOPATHY [None]
  - VENOUS ANEURYSM [None]
  - ARTERIOVENOUS FISTULA THROMBOSIS [None]
  - ARTERIOSCLEROSIS [None]
  - GENERAL PHYSICAL HEALTH DETERIORATION [None]
  - HYPOTHYROIDISM [None]
  - CARDIAC FAILURE CONGESTIVE [None]
  - HYPERCHOLESTEROLAEMIA [None]
  - HYPERKALAEMIA [None]
  - DIZZINESS [None]
  - PERICARDIAL EFFUSION [None]
  - CARDIOMEGALY [None]
  - COUGH [None]
  - DEPRESSION [None]
  - DECREASED APPETITE [None]
  - MITRAL VALVE INCOMPETENCE [None]
  - DYSPNOEA [None]
  - CARDIOACTIVE DRUG LEVEL ABOVE THERAPEUTIC [None]
  - RENAL FAILURE [None]
  - PALLOR [None]
  - HYPERTENSION [None]
  - ANXIETY [None]
  - WHEELCHAIR USER [None]
  - RETCHING [None]
  - INTERNATIONAL NORMALISED RATIO INCREASED [None]
  - CHRONIC RESPIRATORY FAILURE [None]
  - PANIC ATTACK [None]
  - INJURY [None]
  - SURGERY [None]
  - ARTERIOSCLEROSIS CORONARY ARTERY [None]
